FAERS Safety Report 5934261-4 (Version None)
Quarter: 2008Q4

REPORT INFORMATION
  Report Type: 
  Country: None (occurrence: None)
  Receive Date: 20081028
  Receipt Date: 20081028
  Transmission Date: 20090506
  Serious: No
  Sender: FDA-Public Use
  Company Number: None

PATIENT
  Sex: Male
  Weight: 93.95 kg

DRUGS (1)
  1. INTRON A [Suspect]
     Dosage: 860 MU

REACTIONS (2)
  - DEHYDRATION [None]
  - HYPOCALCAEMIA [None]
